FAERS Safety Report 9337834 (Version 2)
Quarter: 2013Q3

REPORT INFORMATION
  Report Type: Spontaneous
  Country: JP (occurrence: JP)
  Receive Date: 20130607
  Receipt Date: 20130704
  Transmission Date: 20140515
  Serious: Yes (Other)
  Sender: FDA-Public Use
  Company Number: JP-MERCK-1306JPN001913

PATIENT
  Sex: 0

DRUGS (2)
  1. GASTER [Suspect]
     Route: 048
  2. DEXAMETHASONE SODIUM PHOSPHATE [Suspect]

REACTIONS (2)
  - Drug-induced liver injury [Recovering/Resolving]
  - Off label use [Unknown]
